FAERS Safety Report 6151618-X (Version None)
Quarter: 2009Q2

REPORT INFORMATION
  Report Type: 
  Country: None (occurrence: None)
  Receive Date: 20090410
  Receipt Date: 20090330
  Transmission Date: 20091009
  Serious: Yes (Disabling)
  Sender: FDA-Public Use
  Company Number: JP-PFIZER INC-2009192527

PATIENT

DRUGS (3)
  1. AMLODIN [Suspect]
     Indication: HYPERTENSION
     Dosage: 5 MG, UNK
     Route: 048
     Dates: start: 20090105
  2. OLMESARTAN MEDOXOMIL [Suspect]
     Dosage: 20` MG, UNK
     Route: 048
     Dates: start: 20090105
  3. CALBLOCK [Suspect]
     Dosage: 16 MG, UNK
     Route: 048
     Dates: start: 20090105

REACTIONS (1)
  - TOOTH LOSS [None]
